FAERS Safety Report 4332893-0 (Version None)
Quarter: 2004Q1

REPORT INFORMATION
  Report Type: 
  Country: None (occurrence: None)
  Receive Date: 20040330
  Receipt Date: 20040318
  Transmission Date: 20041129
  Serious: No
  Sender: FDA-Public Use
  Company Number: 2004UW05259

PATIENT
  Age: 34 Year
  Sex: Female
  Weight: 106.5953 kg

DRUGS (1)
  1. ACCOLATE [Suspect]
     Indication: ASTHMA
     Dosage: 20 MG BID PO
     Route: 048
     Dates: start: 19960101

REACTIONS (2)
  - HEPATITIS C [None]
  - LIVER DISORDER [None]
